FAERS Safety Report 24531223 (Version 1)
Quarter: 2024Q4

REPORT INFORMATION
  Report Type: Spontaneous
  Country: US (occurrence: US)
  Receive Date: 20241022
  Receipt Date: 20241022
  Transmission Date: 20250114
  Serious: Yes (Hospitalization, Other)
  Sender: GRAVITI PHARMACEUTICALS PRIVATE LIMITED
  Company Number: US-GRAVITIPHARMA-GRA-2410-US-LIT-0509

PATIENT
  Age: 67 Year
  Sex: Male

DRUGS (18)
  1. ESCITALOPRAM [Suspect]
     Active Substance: ESCITALOPRAM OXALATE
     Indication: Attention deficit hyperactivity disorder
     Route: 065
  2. ESCITALOPRAM [Suspect]
     Active Substance: ESCITALOPRAM OXALATE
     Indication: Fibromyalgia
  3. ESCITALOPRAM [Suspect]
     Active Substance: ESCITALOPRAM OXALATE
     Indication: Seizure
  4. AMPHETAMINE [Suspect]
     Active Substance: AMPHETAMINE
     Indication: Attention deficit hyperactivity disorder
     Route: 065
  5. AMPHETAMINE [Suspect]
     Active Substance: AMPHETAMINE
     Indication: Seizure
  6. AMPHETAMINE [Suspect]
     Active Substance: AMPHETAMINE
     Indication: Fibromyalgia
  7. DEXTROAMPHETAMINE [Suspect]
     Active Substance: DEXTROAMPHETAMINE
     Indication: Attention deficit hyperactivity disorder
     Route: 065
  8. DEXTROAMPHETAMINE [Suspect]
     Active Substance: DEXTROAMPHETAMINE
     Indication: Fibromyalgia
  9. DEXTROAMPHETAMINE [Suspect]
     Active Substance: DEXTROAMPHETAMINE
     Indication: Seizure
  10. FENTANYL [Suspect]
     Active Substance: FENTANYL
     Indication: Attention deficit hyperactivity disorder
     Route: 065
  11. FENTANYL [Suspect]
     Active Substance: FENTANYL
     Indication: Seizure
  12. FENTANYL [Suspect]
     Active Substance: FENTANYL
     Indication: Fibromyalgia
  13. LAMOTRIGINE [Suspect]
     Active Substance: LAMOTRIGINE
     Indication: Attention deficit hyperactivity disorder
     Route: 065
  14. LAMOTRIGINE [Suspect]
     Active Substance: LAMOTRIGINE
     Indication: Seizure
  15. LAMOTRIGINE [Suspect]
     Active Substance: LAMOTRIGINE
     Indication: Fibromyalgia
  16. OLANZAPINE [Suspect]
     Active Substance: OLANZAPINE
     Indication: Attention deficit hyperactivity disorder
     Route: 065
  17. OLANZAPINE [Suspect]
     Active Substance: OLANZAPINE
     Indication: Seizure
  18. OLANZAPINE [Suspect]
     Active Substance: OLANZAPINE
     Indication: Fibromyalgia

REACTIONS (2)
  - Serotonin syndrome [Unknown]
  - Drug interaction [Unknown]
